FAERS Safety Report 15135106 (Version 1)
Quarter: 2018Q3

REPORT INFORMATION
  Report Type: Spontaneous
  Country: US (occurrence: US)
  Receive Date: 20180712
  Receipt Date: 20180712
  Transmission Date: 20181010
  Serious: No
  Sender: FDA-Public Use
  Company Number: US-ABBVIE-18P-163-2329001-00

PATIENT
  Sex: Female

DRUGS (1)
  1. VENETOCLAX. [Suspect]
     Active Substance: VENETOCLAX
     Indication: MANTLE CELL LYMPHOMA
     Dosage: WITH BREAKFAST
     Route: 048
     Dates: start: 20180416

REACTIONS (2)
  - Off label use [Unknown]
  - Intentional product use issue [Unknown]
